FAERS Safety Report 9524153 (Version 3)
Quarter: 2014Q1

REPORT INFORMATION
  Report Type: Spontaneous
  Country: GB (occurrence: GB)
  Receive Date: 20130916
  Receipt Date: 20140127
  Transmission Date: 20141002
  Serious: Yes (Other)
  Sender: FDA-Public Use
  Company Number: GB-ACCORD-016062

PATIENT
  Age: 46 Year
  Sex: Male
  Weight: 75 kg

DRUGS (7)
  1. AMLODIPINE [Suspect]
     Indication: HEPATITIS C
     Route: 065
  2. COPEGUS [Interacting]
     Indication: HEPATITIS C
     Route: 048
     Dates: start: 20121001
  3. INCIVO [Interacting]
     Indication: HEPATITIS C
     Route: 048
     Dates: start: 20121001
  4. LANTUS [Concomitant]
     Indication: PRODUCT USED FOR UNKNOWN INDICATION
     Route: 065
  5. RAMIPRIL [Concomitant]
     Indication: BLOOD PRESSURE
     Route: 065
  6. NOVORAPID [Concomitant]
     Indication: DIABETES MELLITUS
     Dosage: DOSAGE FORM: UNSPECIFIED, 8/8/18 UNITS
     Route: 065
  7. PEGASYS [Concomitant]
     Indication: HEPATITIS C
     Route: 058

REACTIONS (6)
  - Drug interaction [Recovered/Resolved]
  - Rash [Recovering/Resolving]
  - Electrocardiogram QT prolonged [Recovered/Resolved]
  - Haemoglobin decreased [Not Recovered/Not Resolved]
  - Vision blurred [Recovered/Resolved]
  - Off label use [Unknown]
